FAERS Safety Report 6323706-6 (Version None)
Quarter: 2009Q3

REPORT INFORMATION
  Report Type: 
  Country: None (occurrence: None)
  Receive Date: 20090824
  Receipt Date: 20090605
  Transmission Date: 20100115
  Serious: No
  Sender: FDA-Public Use
  Company Number: US-ABBOTT-09P-163-0578512-00

PATIENT
  Sex: Female

DRUGS (5)
  1. NIASPAN [Suspect]
     Indication: BLOOD CHOLESTEROL INCREASED
     Dates: start: 20090401
  2. NIASPAN [Suspect]
  3. NORVASC [Concomitant]
     Indication: HYPERTENSION
  4. BENICAR [Concomitant]
     Indication: HYPERTENSION
  5. LIPITOR [Concomitant]
     Indication: BLOOD CHOLESTEROL INCREASED

REACTIONS (1)
  - MEDICATION RESIDUE [None]
